FAERS Safety Report 20883332 (Version 1)
Quarter: 2022Q2

REPORT INFORMATION
  Report Type: Spontaneous
  Country: US (occurrence: None)
  Receive Date: 20220527
  Receipt Date: 20220527
  Transmission Date: 20220721
  Serious: Yes (Other)
  Sender: FDA-Public Use
  Company Number: US-ROCHE-3101903

PATIENT
  Age: 67 Year
  Sex: Female
  Weight: 45.854 kg

DRUGS (5)
  1. HERCEPTIN [Suspect]
     Active Substance: TRASTUZUMAB
     Indication: Breast cancer
     Route: 042
     Dates: start: 202103
  2. ATIVAN [Concomitant]
     Active Substance: LORAZEPAM
     Indication: Panic attack
     Route: 048
     Dates: start: 2021
  3. ATIVAN [Concomitant]
     Active Substance: LORAZEPAM
     Indication: Anxiety
  4. LEXAPRO [Concomitant]
     Active Substance: ESCITALOPRAM OXALATE
     Indication: Anxiety
     Route: 048
     Dates: start: 2021
  5. BRILINTA [Concomitant]
     Active Substance: TICAGRELOR
     Indication: Anticoagulant therapy
     Route: 048

REACTIONS (5)
  - Dysgeusia [Not Recovered/Not Resolved]
  - Weight decreased [Not Recovered/Not Resolved]
  - Gastrooesophageal reflux disease [Not Recovered/Not Resolved]
  - Myocardial infarction [Unknown]
  - Blood glucose increased [Unknown]

NARRATIVE: CASE EVENT DATE: 20210501
